FAERS Safety Report 8804148 (Version 1)
Quarter: 2012Q4

REPORT INFORMATION
  Report Type: 
  Country: US (occurrence: US)
  Receive Date: 20120924
  Receipt Date: 20120924
  Transmission Date: 20130627
  Serious: Yes (Other)
  Sender: FDA-Public Use
  Company Number: US-SANOFI-AVENTIS-2012SA068055

PATIENT
  Age: 74 Year
  Sex: Male
  Weight: 94 kg

DRUGS (6)
  1. PLAVIX [Suspect]
     Indication: BYPASS SURGERY
     Route: 065
  2. ATORVASTATIN CALCIUM [Suspect]
     Indication: CHOLESTEROL
     Route: 065
  3. DOXAZOSIN MESYLATE [Suspect]
     Indication: HEART DISORDER
     Route: 065
  4. VASOTEC [Suspect]
     Indication: BYPASS SURGERY
     Route: 065
  5. PROSCAR [Suspect]
     Indication: BYPASS SURGERY
     Route: 065
  6. HYDRODIURIL [Suspect]
     Indication: BYPASS SURGERY
     Route: 065

REACTIONS (1)
  - Coronary artery disease [Unknown]
